FAERS Safety Report 11541061 (Version 1)
Quarter: 2015Q3

REPORT INFORMATION
  Report Type: Spontaneous
  Country: US (occurrence: US)
  Receive Date: 20150923
  Receipt Date: 20150923
  Transmission Date: 20151125
  Serious: No
  Sender: FDA-Public Use
  Company Number: US-APOTEX-2014AP004071

PATIENT

DRUGS (1)
  1. PAROXETINE HYDROCHLORIDE CONTROLLED-RELEASE [Suspect]
     Active Substance: PAROXETINE HYDROCHLORIDE
     Indication: PRODUCT USED FOR UNKNOWN INDICATION
     Dosage: 40 MG, QD
     Route: 065
     Dates: start: 2013

REACTIONS (2)
  - Condition aggravated [Unknown]
  - Drug ineffective [Unknown]
